FAERS Safety Report 18548579 (Version 3)
Quarter: 2020Q4

REPORT INFORMATION
  Report Type: Report from Study
  Country: CN (occurrence: CN)
  Receive Date: 20201125
  Receipt Date: 20201207
  Transmission Date: 20210114
  Serious: Yes (Hospitalization, Other)
  Sender: FDA-Public Use
  Company Number: CN-BRISTOL-MYERS SQUIBB COMPANY-BMS-2020-098784

PATIENT
  Age: 58 Year
  Sex: Male
  Weight: 50 kg

DRUGS (7)
  1. PALONOSETRON HYDROCHLORIDE. [Concomitant]
     Active Substance: PALONOSETRON HYDROCHLORIDE
     Indication: PROPHYLAXIS
     Dosage: 0.25 MILLIGRAM, ONCE
     Route: 042
     Dates: start: 20201103, end: 20201103
  2. DEXAMETHASONE. [Concomitant]
     Active Substance: DEXAMETHASONE
     Indication: PRODUCT USED FOR UNKNOWN INDICATION
     Dosage: 5 MILLIGRAM
     Route: 042
     Dates: start: 20201103, end: 20201103
  3. EMEND [Concomitant]
     Active Substance: APREPITANT
     Indication: PROPHYLAXIS
     Dosage: 80 MILLIGRAM, ONCE
     Route: 048
     Dates: start: 20201103, end: 20201103
  4. PACLITAXEL. [Suspect]
     Active Substance: PACLITAXEL
     Indication: NON-SMALL CELL LUNG CANCER
     Dosage: 250 MILLIGRAM
     Route: 065
     Dates: start: 20201103
  5. NIVOLUMAB [Suspect]
     Active Substance: NIVOLUMAB
     Indication: NON-SMALL CELL LUNG CANCER
     Dosage: 360 MILLIGRAM
     Route: 042
     Dates: start: 20201103
  6. CARBOPLATIN. [Suspect]
     Active Substance: CARBOPLATIN
     Indication: NON-SMALL CELL LUNG CANCER
     Dosage: 500 MILLIGRAM
     Route: 065
     Dates: start: 20201103
  7. DICLOFENAC SODIUM. [Concomitant]
     Active Substance: DICLOFENAC SODIUM
     Indication: PRODUCT USED FOR UNKNOWN INDICATION
     Dosage: 75 MILLIGRAM, ONCE
     Route: 048
     Dates: start: 20201105, end: 20201105

REACTIONS (2)
  - Pneumonia [Recovered/Resolved]
  - Immune-mediated pneumonitis [Recovered/Resolved]

NARRATIVE: CASE EVENT DATE: 20201117
